FAERS Safety Report 15867912 (Version 1)
Quarter: 2019Q1

REPORT INFORMATION
  Report Type: Spontaneous
  Country: GR (occurrence: GR)
  Receive Date: 20190125
  Receipt Date: 20190125
  Transmission Date: 20190417
  Serious: Yes (Other)
  Sender: FDA-Public Use
  Company Number: PHHY2019GR014221

PATIENT
  Age: 27 Year
  Sex: Female

DRUGS (2)
  1. BUDESONIDE. [Suspect]
     Active Substance: BUDESONIDE
     Indication: PRODUCT USED FOR UNKNOWN INDICATION
     Route: 065
  2. 5-ASA [Concomitant]
     Active Substance: MESALAMINE
     Indication: PRODUCT USED FOR UNKNOWN INDICATION
     Route: 065

REACTIONS (6)
  - Abdominal pain [Recovering/Resolving]
  - Colitis [Recovering/Resolving]
  - Peritonitis [Recovering/Resolving]
  - Colitis ulcerative [Recovering/Resolving]
  - Concomitant disease aggravated [Recovering/Resolving]
  - Pyrexia [Recovering/Resolving]
